FAERS Safety Report 15598035 (Version 2)
Quarter: 2019Q1

REPORT INFORMATION
  Report Type: Spontaneous
  Country: US (occurrence: US)
  Receive Date: 20181108
  Receipt Date: 20190213
  Transmission Date: 20190417
  Serious: Yes (Other)
  Sender: FDA-Public Use
  Company Number: US-009507513-1811USA002903

PATIENT
  Sex: Female

DRUGS (1)
  1. TEMODAR [Suspect]
     Active Substance: TEMOZOLOMIDE
     Indication: EPENDYMOMA MALIGNANT
     Dosage: UNK

REACTIONS (3)
  - Mutagenic effect [Not Recovered/Not Resolved]
  - Neoplasm recurrence [Unknown]
  - Product use in unapproved indication [Unknown]
